FAERS Safety Report 14020074 (Version 1)
Quarter: 2017Q3

REPORT INFORMATION
  Report Type: Spontaneous
  Country: FR (occurrence: FR)
  Receive Date: 20170928
  Receipt Date: 20170928
  Transmission Date: 20171128
  Serious: Yes (Other)
  Sender: FDA-Public Use
  Company Number: FR-MERCK KGAA-2028047

PATIENT
  Age: 33 Year
  Sex: Female

DRUGS (2)
  1. LEVOTHYROXINE SODIUM. [Suspect]
     Active Substance: LEVOTHYROXINE SODIUM
     Route: 048
     Dates: start: 20170825
  2. NOVOTHYROX [Suspect]
     Active Substance: LEVOTHYROXINE SODIUM
     Route: 048
     Dates: start: 201706

REACTIONS (9)
  - Asthenia [Recovering/Resolving]
  - Polymenorrhoea [Not Recovered/Not Resolved]
  - Breast pain [Not Recovered/Not Resolved]
  - Hypotension [Not Recovered/Not Resolved]
  - Constipation [Not Recovered/Not Resolved]
  - Blood thyroid stimulating hormone increased [Not Recovered/Not Resolved]
  - Muscle spasms [Not Recovered/Not Resolved]
  - Abnormal weight gain [Recovering/Resolving]
  - Pain [Not Recovered/Not Resolved]

NARRATIVE: CASE EVENT DATE: 201706
